FAERS Safety Report 15800892 (Version 1)
Quarter: 2019Q1

REPORT INFORMATION
  Report Type: Spontaneous
  Country: US (occurrence: US)
  Receive Date: 20190109
  Receipt Date: 20190109
  Transmission Date: 20190417
  Serious: No
  Sender: FDA-Public Use
  Company Number: US-ADAAP-201800186

PATIENT
  Age: 93 Year
  Sex: Female
  Weight: 59 kg

DRUGS (3)
  1. LUTATHERA [Suspect]
     Active Substance: LUTETIUM OXODOTREOTIDE LU-177
     Indication: COLON CANCER
     Route: 042
     Dates: start: 20180822, end: 20180822
  2. AMINO ACID [Concomitant]
     Active Substance: AMINO ACIDS
     Indication: DRUG TOXICITY PROPHYLAXIS
     Route: 041
     Dates: start: 20181017, end: 20181017
  3. LUTATHERA [Suspect]
     Active Substance: LUTETIUM OXODOTREOTIDE LU-177
     Indication: COLON CANCER
     Route: 042
     Dates: start: 20181017, end: 20181017

REACTIONS (3)
  - Vomiting [Recovered/Resolved]
  - Asthenia [Unknown]
  - Nausea [Recovered/Resolved]

NARRATIVE: CASE EVENT DATE: 20181017
